FAERS Safety Report 6433738-5 (Version None)
Quarter: 2009Q4

REPORT INFORMATION
  Report Type: 
  Country: None (occurrence: None)
  Receive Date: 20091110
  Receipt Date: 20091031
  Transmission Date: 20100525
  Serious: Yes (Other)
  Sender: FDA-Public Use
  Company Number: US-ROCHE-666146

PATIENT
  Sex: Male

DRUGS (2)
  1. CAPECITABINE [Suspect]
     Indication: DRUG USE FOR UNKNOWN INDICATION
     Route: 048
     Dates: start: 20090910
  2. CAPECITABINE [Suspect]
     Route: 048

REACTIONS (1)
  - HALLUCINATION [None]
